FAERS Safety Report 14255143 (Version 1)
Quarter: 2017Q4

REPORT INFORMATION
  Report Type: Spontaneous
  Country: US (occurrence: US)
  Receive Date: 20171206
  Receipt Date: 20171206
  Transmission Date: 20180321
  Serious: No
  Sender: FDA-Public Use
  Company Number: US-GLAXOSMITHKLINE-US2017181723

PATIENT
  Sex: Male

DRUGS (1)
  1. FLONASE SENSIMIST ALLERGY RELIEF [Suspect]
     Active Substance: FLUTICASONE FUROATE
     Indication: PRODUCT USED FOR UNKNOWN INDICATION
     Dosage: UNK

REACTIONS (6)
  - Wound [Not Recovered/Not Resolved]
  - Sleep disorder [Not Recovered/Not Resolved]
  - Yellow skin [Not Recovered/Not Resolved]
  - Product package associated injury [Unknown]
  - Laceration [Not Recovered/Not Resolved]
  - Pain in extremity [Not Recovered/Not Resolved]
